FAERS Safety Report 7435237-0 (Version None)
Quarter: 2011Q2

REPORT INFORMATION
  Report Type: 
  Country: None (occurrence: None)
  Receive Date: 20110425
  Receipt Date: 20110415
  Transmission Date: 20111010
  Serious: Yes (Hospitalization)
  Sender: FDA-Public Use
  Company Number: GB-ABBOTT-11P-167-0714183-00

PATIENT
  Sex: Female

DRUGS (3)
  1. TRANEXAMIC [Concomitant]
     Indication: MENORRHAGIA
     Route: 048
     Dates: start: 20101206
  2. HUMIRA [Suspect]
     Indication: CROHN'S DISEASE
     Route: 058
     Dates: start: 20100223
  3. NYSTATIN [Concomitant]
     Indication: ORAL CANDIDIASIS
     Route: 048
     Dates: start: 20100303, end: 20100313

REACTIONS (1)
  - ANAPHYLACTIC REACTION [None]
